FAERS Safety Report 6279010-8 (Version None)
Quarter: 2009Q3

REPORT INFORMATION
  Report Type: 
  Country: None (occurrence: None)
  Receive Date: 20090723
  Receipt Date: 20090716
  Transmission Date: 20100115
  Serious: Yes (Hospitalization)
  Sender: FDA-Public Use
  Company Number: PHHO2009US05022

PATIENT
  Sex: Male
  Weight: 100 kg

DRUGS (4)
  1. RAD 666 RAD+TAB [Suspect]
     Indication: METASTATIC RENAL CELL CARCINOMA
     Dosage: 10 MG/DAY
     Route: 048
     Dates: start: 20090205, end: 20090415
  2. METFORMIN HCL [Concomitant]
  3. LEXAPRO [Concomitant]
  4. LISINOPRIL [Concomitant]

REACTIONS (8)
  - ABDOMINAL PAIN UPPER [None]
  - ANAEMIA [None]
  - DUODENITIS [None]
  - HAEMATEMESIS [None]
  - HELICOBACTER GASTRITIS [None]
  - IRON DEFICIENCY [None]
  - PLATELET COUNT DECREASED [None]
  - UPPER GASTROINTESTINAL HAEMORRHAGE [None]
